FAERS Safety Report 9831942 (Version 1)
Quarter: 2014Q1

REPORT INFORMATION
  Report Type: Spontaneous
  Country: US (occurrence: US)
  Receive Date: 20140121
  Receipt Date: 20140121
  Transmission Date: 20141002
  Serious: Yes (Other)
  Sender: FDA-Public Use
  Company Number: US-ASTELLAS-2014US000498

PATIENT
  Age: 23 Year
  Sex: Male

DRUGS (1)
  1. PROGRAF [Suspect]
     Indication: RENAL TRANSPLANT
     Dosage: UNK
     Route: 048

REACTIONS (4)
  - Off label use [Unknown]
  - Drug ineffective [Unknown]
  - Renal transplant [Unknown]
  - Kidney transplant rejection [Unknown]
